FAERS Safety Report 7815882-0 (Version None)
Quarter: 2011Q4

REPORT INFORMATION
  Report Type: 
  Country: None (occurrence: None)
  Receive Date: 20111014
  Receipt Date: 20110930
  Transmission Date: 20120403
  Serious: Yes (Hospitalization)
  Sender: FDA-Public Use
  Company Number: NL-ROCHE-786153

PATIENT
  Sex: Male

DRUGS (4)
  1. CISPLATIN [Suspect]
     Indication: GASTRIC CANCER
     Route: 042
  2. ONDANSETRON [Concomitant]
  3. XELODA [Suspect]
     Indication: GASTRIC CANCER
     Route: 048
  4. EPIRUBICIN HYDROCHLORIDE [Suspect]
     Indication: GASTRIC CANCER
     Route: 042

REACTIONS (6)
  - NAUSEA [None]
  - BILE DUCT STENOSIS [None]
  - DEVICE OCCLUSION [None]
  - PYREXIA [None]
  - VOMITING [None]
  - BILIARY TRACT INFECTION [None]
